FAERS Safety Report 4413340-7 (Version None)
Quarter: 2004Q3

REPORT INFORMATION
  Report Type: 
  Country: None (occurrence: None)
  Receive Date: 20040728
  Receipt Date: 20040715
  Transmission Date: 20050211
  Serious: Yes (Hospitalization)
  Sender: FDA-Public Use
  Company Number: US-JNJFOC-20040704997

PATIENT
  Age: 63 Year
  Sex: Female

DRUGS (7)
  1. DITROPAN XL [Suspect]
     Indication: HYPERTONIC BLADDER
     Dosage: 15 MG, 1 IN 1 DAY, ORAL
     Route: 048
     Dates: start: 20030101
  2. LIPITOR [Concomitant]
  3. ARTHROTEC [Concomitant]
  4. ACETYLSALICYLIC ACID SRT [Concomitant]
  5. CLINDAMYCIN HCL [Concomitant]
  6. CIPRO [Concomitant]
  7. MULTIVITAMIN [Concomitant]

REACTIONS (4)
  - DRY MOUTH [None]
  - POSTOPERATIVE INFECTION [None]
  - SKIN CYST EXCISION [None]
  - STAPHYLOCOCCAL INFECTION [None]
